FAERS Safety Report 10358363 (Version 3)
Quarter: 2014Q3

REPORT INFORMATION
  Report Type: Spontaneous
  Country: US (occurrence: None)
  Receive Date: 20140730
  Receipt Date: 20140822
  Transmission Date: 20150326
  Serious: Yes (Hospitalization)
  Sender: FDA-Public Use
  Company Number: 2014-US-009115

PATIENT
  Age: 85 Year
  Sex: Male
  Weight: 72.6 kg

DRUGS (5)
  1. XYREM [Suspect]
     Active Substance: SODIUM OXYBATE
     Indication: CATAPLEXY
     Dosage: 1.13 G. FIRST DOSE, ORAL
     Route: 048
     Dates: start: 201306, end: 2013
  2. KEPPRA [Suspect]
     Active Substance: LEVETIRACETAM
     Indication: CONVULSION PROPHYLAXIS
     Dates: start: 2014, end: 20140720
  3. XYREM [Suspect]
     Active Substance: SODIUM OXYBATE
     Indication: NARCOLEPSY
     Dosage: 1.13 G. FIRST DOSE, ORAL
     Route: 048
     Dates: start: 201306, end: 2013
  4. PREDNISONE (PREDNISONE) [Suspect]
     Active Substance: PREDNISONE
     Indication: PRODUCT USED FOR UNKNOWN INDICATION
     Route: 048
     Dates: start: 2014
  5. ALL OTHER THERAPEUTIC PRODUCTS (ALL OTHER THERAPEUTIC PRODUCTS) [Concomitant]

REACTIONS (4)
  - Fall [None]
  - Cataplexy [None]
  - Facial bones fracture [None]
  - Spinal fracture [None]

NARRATIVE: CASE EVENT DATE: 2014
